FAERS Safety Report 4362878-X (Version None)
Quarter: 2004Q2

REPORT INFORMATION
  Report Type: 
  Country: None (occurrence: None)
  Receive Date: 20040518
  Receipt Date: 20040505
  Transmission Date: 20050107
  Serious: Yes (Hospitalization)
  Sender: FDA-Public Use
  Company Number: 2004025967

PATIENT
  Sex: Female

DRUGS (1)
  1. ATORVASTATIN (ATORVASTATIN) [Suspect]
     Indication: DYSLIPIDAEMIA
     Dosage: 10 MG (1 IN 1 D), ORAL
     Route: 048
     Dates: end: 20040329

REACTIONS (6)
  - ACCIDENT [None]
  - DECREASED APPETITE [None]
  - FALL [None]
  - FEMUR FRACTURE [None]
  - NAUSEA [None]
  - WEIGHT DECREASED [None]
